FAERS Safety Report 9457316 (Version 2)
Quarter: 2013Q3

REPORT INFORMATION
  Report Type: Spontaneous
  Country: JP (occurrence: JP)
  Receive Date: 20130814
  Receipt Date: 20130924
  Transmission Date: 20140515
  Serious: No
  Sender: FDA-Public Use
  Company Number: PHHY2013JP087204

PATIENT
  Age: 64 Year
  Sex: Female

DRUGS (3)
  1. DIOVAN [Suspect]
     Indication: HYPERTENSION
     Dosage: UNK UKN, UNK
     Route: 048
  2. LIPITOR [Suspect]
     Dosage: UNK UKN, UNK
     Route: 048
  3. ALOSENN [Suspect]
     Dosage: UNK UKN, UNK
     Route: 048

REACTIONS (1)
  - Nail disorder [Unknown]
